FAERS Safety Report 9476614 (Version 1)
Quarter: 2013Q3

REPORT INFORMATION
  Report Type: Spontaneous
  Country: US (occurrence: US)
  Receive Date: 20130826
  Receipt Date: 20130826
  Transmission Date: 20140515
  Serious: No
  Sender: FDA-Public Use
  Company Number: US-BAYER-2013-102526

PATIENT
  Age: 62 Year
  Sex: Male

DRUGS (2)
  1. MAGNEVIST [Suspect]
     Indication: NUCLEAR MAGNETIC RESONANCE IMAGING BRAIN
     Dosage: 13 ML, ONCE
     Dates: start: 20130822, end: 20130822
  2. MAGNEVIST [Suspect]
     Indication: BLOOD GLUCOSE INCREASED

REACTIONS (2)
  - Urticaria [None]
  - Pruritus [Recovered/Resolved]
